FAERS Safety Report 8618118-6 (Version None)
Quarter: 2012Q3

REPORT INFORMATION
  Report Type: 
  Country: None (occurrence: None)
  Receive Date: 20120824
  Receipt Date: 20120605
  Transmission Date: 20120928
  Serious: No
  Sender: FDA-Public Use
  Company Number: US-ASTRAZENECA-2010SE55309

PATIENT
  Age: 62 Year
  Sex: Female
  Weight: 99.8 kg

DRUGS (7)
  1. VITAMIN TAB [Concomitant]
  2. SYMBICORT [Suspect]
     Indication: CHRONIC OBSTRUCTIVE PULMONARY DISEASE
     Dosage: 320 MCG BID
     Route: 055
  3. NEXIUM [Suspect]
     Dosage: DAILY
     Route: 048
  4. NEXIUM [Suspect]
     Dosage: TWICE DAILY
     Route: 048
  5. NEXIUM [Suspect]
     Dosage: ONCE DAILY
     Route: 048
  6. CRESTOR [Concomitant]
  7. WATER PILL [Concomitant]
     Dosage: AS REQUIRED

REACTIONS (8)
  - LOWER RESPIRATORY TRACT INFECTION [None]
  - ADVERSE EVENT [None]
  - COUGH [None]
  - DRUG INEFFECTIVE [None]
  - BRONCHITIS [None]
  - INTENTIONAL DRUG MISUSE [None]
  - OFF LABEL USE [None]
  - NASAL CONGESTION [None]
